FAERS Safety Report 5709575-3 (Version None)
Quarter: 2008Q2

REPORT INFORMATION
  Report Type: 
  Country: None (occurrence: None)
  Receive Date: 20080418
  Receipt Date: 20080415
  Transmission Date: 20081010
  Serious: Yes (Death)
  Sender: FDA-Public Use
  Company Number: BR-ABBOTT-08P-020-0447641-00

PATIENT
  Sex: Male

DRUGS (1)
  1. RITONAVIR SOFT GELATIN CAPSULES (COMPARATOR) [Suspect]
     Indication: HIV INFECTION
     Route: 048
     Dates: end: 20031125

REACTIONS (1)
  - DEATH [None]
